FAERS Safety Report 9996397 (Version 1)
Quarter: 2014Q1

REPORT INFORMATION
  Report Type: Spontaneous
  Country: US (occurrence: US)
  Receive Date: 20140311
  Receipt Date: 20140311
  Transmission Date: 20141002
  Serious: Yes (Hospitalization)
  Sender: FDA-Public Use
  Company Number: US-BAYER-2014-034997

PATIENT
  Age: 32 Year
  Sex: Female
  Weight: 78.01 kg

DRUGS (5)
  1. YAZ [Suspect]
  2. VICODIN [Concomitant]
  3. NAPROXEN [Concomitant]
  4. CHANTIX [Concomitant]
  5. PERCOCET [Concomitant]

REACTIONS (1)
  - Pulmonary embolism [Recovered/Resolved]
